FAERS Safety Report 4852935-3 (Version None)
Quarter: 2005Q4

REPORT INFORMATION
  Report Type: 
  Country: None (occurrence: None)
  Receive Date: 20051214
  Receipt Date: 20051130
  Transmission Date: 20060501
  Serious: Yes (Death)
  Sender: FDA-Public Use
  Company Number: IL-NOVOPROD-248964

PATIENT
  Age: 76 Year
  Sex: Male
  Weight: 80 kg

DRUGS (2)
  1. NOVOSEVEN [Suspect]
     Indication: TRAUMATIC HAEMORRHAGE
     Dosage: 7.2 MG, UNK
     Route: 042
     Dates: start: 20051129
  2. COUMADIN [Concomitant]

REACTIONS (2)
  - DRUG EFFECT DECREASED [None]
  - SHOCK HAEMORRHAGIC [None]
